FAERS Safety Report 9013670 (Version 1)
Quarter: 2013Q1

REPORT INFORMATION
  Report Type: Spontaneous
  Country: US (occurrence: None)
  Receive Date: 20130109
  Receipt Date: 20130109
  Transmission Date: 20140127
  Serious: No
  Sender: FDA-Public Use
  Company Number: None

PATIENT
  Age: 50 Year
  Sex: Male

DRUGS (1)
  1. GLEEVEC, 100 MG, NOVARTIS [Suspect]
     Route: 048
     Dates: start: 20120917, end: 20130108

REACTIONS (2)
  - Fatigue [None]
  - Eye oedema [None]
